FAERS Safety Report 5782126-3 (Version None)
Quarter: 2008Q2

REPORT INFORMATION
  Report Type: 
  Country: None (occurrence: None)
  Receive Date: 20080623
  Receipt Date: 20080618
  Transmission Date: 20081010
  Serious: Yes (Life-Threatening, Hospitalization, Other)
  Sender: FDA-Public Use
  Company Number: FR-BRISTOL-MYERS SQUIBB COMPANY-14233555

PATIENT
  Age: 88 Year
  Sex: Female

DRUGS (4)
  1. COUMADIN [Suspect]
     Dates: end: 20080504
  2. CORTANCYL [Concomitant]
     Indication: MUSCULOSKELETAL PAIN
     Dates: end: 20080504
  3. ACTONEL [Concomitant]
     Indication: OSTEOPOROSIS
     Dates: end: 20080504
  4. AMOXICILLIN TRIHYDRATE [Concomitant]
     Indication: LUNG DISORDER
     Dates: start: 20080425, end: 20080504

REACTIONS (5)
  - DIARRHOEA [None]
  - GASTRIC ULCER [None]
  - GASTROINTESTINAL HAEMORRHAGE [None]
  - MALLORY-WEISS SYNDROME [None]
  - SHOCK HAEMORRHAGIC [None]
